FAERS Safety Report 7355983-7 (Version None)
Quarter: 2011Q1

REPORT INFORMATION
  Report Type: 
  Country: None (occurrence: None)
  Receive Date: 20110316
  Receipt Date: 20101213
  Transmission Date: 20110831
  Serious: No
  Sender: FDA-Public Use
  Company Number: US-ABBOTT-10P-163-0691919-00

PATIENT
  Sex: Female
  Weight: 77.18 kg

DRUGS (5)
  1. RANITIDINE [Concomitant]
     Indication: PRODUCT USED FOR UNKNOWN INDICATION
  2. NORCO [Concomitant]
     Indication: PRODUCT USED FOR UNKNOWN INDICATION
  3. NEURONTIN [Concomitant]
     Indication: PRODUCT USED FOR UNKNOWN INDICATION
  4. TRILIPIX [Suspect]
     Indication: BLOOD TRIGLYCERIDES INCREASED
  5. LEVOTHYROXINE [Concomitant]
     Indication: PRODUCT USED FOR UNKNOWN INDICATION

REACTIONS (3)
  - CATARACT [None]
  - VISUAL ACUITY REDUCED [None]
  - HEADACHE [None]
